FAERS Safety Report 22302224 (Version 1)
Quarter: 2023Q2

REPORT INFORMATION
  Report Type: Spontaneous
  Country: AU (occurrence: AU)
  Receive Date: 20230510
  Receipt Date: 20230510
  Transmission Date: 20230721
  Serious: Yes (Other)
  Sender: FDA-Public Use
  Company Number: AU-ALKEM LABORATORIES LIMITED-AU-ALKEM-2023-04871

PATIENT

DRUGS (2)
  1. METFORMIN HYDROCHLORIDE [Suspect]
     Active Substance: METFORMIN HYDROCHLORIDE
     Indication: Product used for unknown indication
     Dosage: UNK
     Route: 064
  2. CLOZAPINE [Suspect]
     Active Substance: CLOZAPINE
     Indication: Product used for unknown indication
     Dosage: UNK
     Route: 064

REACTIONS (5)
  - Neonatal respiratory distress [Unknown]
  - Premature baby [Unknown]
  - Foetal exposure during pregnancy [Unknown]
  - Foetal monitoring abnormal [Unknown]
  - Large for dates baby [Unknown]
